FAERS Safety Report 9288493 (Version 1)
Quarter: 2013Q2

REPORT INFORMATION
  Report Type: Spontaneous
  Country: US (occurrence: US)
  Receive Date: 20130514
  Receipt Date: 20130514
  Transmission Date: 20140414
  Serious: Yes (Hospitalization, Other)
  Sender: FDA-Public Use
  Company Number: GXBR2013US001044

PATIENT
  Age: 42 Year
  Sex: Female
  Weight: 72.56 kg

DRUGS (1)
  1. ZONISAMIDE [Suspect]
     Indication: CONVULSION
     Dosage: 300 MG, QHS
     Route: 048

REACTIONS (2)
  - Aspartate aminotransferase increased [Recovering/Resolving]
  - Cellulitis [Unknown]
